FAERS Safety Report 21859905 (Version 2)
Quarter: 2023Q1

REPORT INFORMATION
  Report Type: Report from Study
  Country: US (occurrence: US)
  Receive Date: 20230113
  Receipt Date: 20230310
  Transmission Date: 20230417
  Serious: Yes (Hospitalization, Other)
  Sender: FDA-Public Use
  Company Number: US-GILEAD-2023-0612510

PATIENT
  Age: 33 Year
  Sex: Female

DRUGS (17)
  1. AZTREONAM LYSINE [Suspect]
     Active Substance: AZTREONAM LYSINE
     Indication: Cystic fibrosis
     Dosage: CAYSTON 75MG INHAL. SOL. RECONST. AND ADD CONTENTS OF 1 VIAL TO ALTER NEBULIZER 3X DAILY FOR 28 DAY.
     Route: 055
     Dates: start: 20181227
  2. BACTRIM [Concomitant]
     Active Substance: SULFAMETHOXAZOLE\TRIMETHOPRIM
  3. STOOL SOFTENER (DOCUSATE) [Concomitant]
     Active Substance: DOCUSATE
  4. SENNAE [Concomitant]
  5. ZOLPIDEM [Concomitant]
     Active Substance: ZOLPIDEM TARTRATE
  6. HYDROXYZINE [Concomitant]
     Active Substance: HYDROXYZINE HYDROCHLORIDE
  7. ONDANSETRON [Concomitant]
     Active Substance: ONDANSETRON
  8. METHADONE [Concomitant]
     Active Substance: METHADONE HYDROCHLORIDE
  9. ZENPEP [Concomitant]
     Active Substance: PANCRELIPASE AMYLASE\PANCRELIPASE LIPASE\PANCRELIPASE PROTEASE
  10. OMEPRAZOLE [Concomitant]
     Active Substance: OMEPRAZOLE
  11. VITAMIN D NOS [Concomitant]
     Active Substance: VITAMIN D NOS
  12. PROAIR HFA [Concomitant]
     Active Substance: ALBUTEROL SULFATE
  13. FERROUS SULFATE [Concomitant]
     Active Substance: FERROUS SULFATE
  14. IBUPROFEN [Concomitant]
     Active Substance: IBUPROFEN
  15. PULMOZYME [Concomitant]
     Active Substance: DORNASE ALFA
  16. BANOPHEN [Concomitant]
     Active Substance: DIPHENHYDRAMINE HYDROCHLORIDE
  17. TRIKAFTA [Concomitant]
     Active Substance: ELEXACAFTOR\IVACAFTOR\TEZACAFTOR

REACTIONS (1)
  - Cystic fibrosis respiratory infection suppression [Unknown]
